FAERS Safety Report 8866327 (Version 7)
Quarter: 2014Q2

REPORT INFORMATION
  Report Type: Spontaneous
  Country: DK (occurrence: DK)
  Receive Date: 20121025
  Receipt Date: 20140605
  Transmission Date: 20141212
  Serious: Yes (Hospitalization, Disabling)
  Sender: FDA-Public Use
  Company Number: PHHY2012DK092232

PATIENT
  Age: 39 Year
  Sex: Male

DRUGS (9)
  1. DICLON [Suspect]
     Indication: ANALGESIC THERAPY
     Dates: start: 200904
  2. DICLON [Suspect]
     Indication: BACK PAIN
  3. IBUMETIN [Suspect]
     Indication: ANALGESIC THERAPY
     Dates: start: 200904
  4. IBUMETIN [Suspect]
     Indication: BACK PAIN
  5. IBUPROFEN [Suspect]
     Indication: ANALGESIC THERAPY
     Dates: start: 200904
  6. IBUPROFEN [Suspect]
     Indication: BACK PAIN
  7. NASONEX [Concomitant]
     Indication: PRODUCT USED FOR UNKNOWN INDICATION
  8. SINGULAIR [Concomitant]
     Indication: PRODUCT USED FOR UNKNOWN INDICATION
  9. SYMBICORT [Concomitant]

REACTIONS (29)
  - Nasal polyps [Not Recovered/Not Resolved]
  - Eosinophilia [Unknown]
  - Anosmia [Unknown]
  - Dyspepsia [Unknown]
  - Inflammation [Unknown]
  - Asthma [Unknown]
  - Hypersensitivity [Unknown]
  - Bone erosion [Unknown]
  - Malaise [Unknown]
  - Nasal congestion [Unknown]
  - Lung disorder [Unknown]
  - Gastric ulcer [Unknown]
  - Abdominal tenderness [Unknown]
  - Vomiting [Unknown]
  - Sinus polyp [Unknown]
  - Dyspnoea [Unknown]
  - Cough [Unknown]
  - Diaphragmalgia [Unknown]
  - Paranasal sinus discomfort [Not Recovered/Not Resolved]
  - Osteochondrosis [Unknown]
  - Nasopharyngitis [Unknown]
  - Sneezing [Unknown]
  - Musculoskeletal discomfort [Unknown]
  - Limb discomfort [Unknown]
  - Seasonal allergy [Unknown]
  - Pain in extremity [Unknown]
  - Pain [Unknown]
  - Dyspepsia [Unknown]
  - Nausea [Unknown]
